FAERS Safety Report 10327927 (Version 2)
Quarter: 2014Q3

REPORT INFORMATION
  Report Type: Spontaneous
  Country: US (occurrence: US)
  Receive Date: 20140721
  Receipt Date: 20140723
  Transmission Date: 20150326
  Serious: Yes (Other)
  Sender: FDA-Public Use
  Company Number: US-PFIZER INC-2014202882

PATIENT
  Age: 50 Year
  Sex: Female
  Weight: 63.49 kg

DRUGS (5)
  1. REMERON [Suspect]
     Active Substance: MIRTAZAPINE
     Indication: CONVULSION
     Dosage: UNK
  2. TOPAMAX [Concomitant]
     Active Substance: TOPIRAMATE
     Indication: CONVULSION
     Dosage: 150 MG (25MG X 6), 2X/DAY
  3. PRISTIQ EXTENDED RELEASE [Concomitant]
     Active Substance: DESVENLAFAXINE SUCCINATE
     Dosage: UNK
  4. CHANTIX [Suspect]
     Active Substance: VARENICLINE TARTRATE
     Indication: SMOKING CESSATION THERAPY
     Dosage: 1 MG, 2X/DAY
     Dates: start: 20140719
  5. KEPPRA [Concomitant]
     Active Substance: LEVETIRACETAM
     Indication: CONVULSION
     Dosage: 1000 MG, 2X/DAY

REACTIONS (11)
  - Convulsion [Unknown]
  - Hunger [Unknown]
  - Irritability [Unknown]
  - Decreased appetite [Unknown]
  - Elevated mood [Unknown]
  - Food craving [Unknown]
  - Abnormal dreams [Unknown]
  - Tremor [Unknown]
  - Feeling abnormal [Unknown]
  - Insomnia [Unknown]
  - Posturing [Unknown]

NARRATIVE: CASE EVENT DATE: 201407
